FAERS Safety Report 8920662 (Version 1)
Quarter: 2012Q4

REPORT INFORMATION
  Report Type: 
  Country: JP (occurrence: JP)
  Receive Date: 20121122
  Receipt Date: 20121122
  Transmission Date: 20130627
  Serious: Yes (Death, Hospitalization)
  Sender: FDA-Public Use
  Company Number: JP-009507513-1211JPN008528

PATIENT
  Age: 87 Year
  Sex: Female

DRUGS (3)
  1. GASTER [Suspect]
     Dosage: 20 mg, bid in the morning and evening
     Route: 048
  2. MUCOSTA [Concomitant]
     Route: 048
  3. GASCON [Concomitant]
     Route: 048

REACTIONS (1)
  - Gastrointestinal haemorrhage [Fatal]
